FAERS Safety Report 4746546-8 (Version None)
Quarter: 2005Q3

REPORT INFORMATION
  Report Type: 
  Country: None (occurrence: None)
  Receive Date: 20050815
  Receipt Date: 20050802
  Transmission Date: 20060218
  Serious: Yes (Disabling)
  Sender: FDA-Public Use
  Company Number: HQWYE692804AUG2005

PATIENT
  Age: 44 Year
  Sex: Female

DRUGS (5)
  1. EFFEXOR XR [Suspect]
     Indication: DEPRESSION
     Dosage: SEE IMAGE
     Route: 048
     Dates: start: 19990101, end: 20010101
  2. EFFEXOR XR [Suspect]
     Indication: DEPRESSION
     Dosage: SEE IMAGE
     Route: 048
     Dates: start: 20050101, end: 20050728
  3. EFFEXOR XR [Suspect]
     Indication: DEPRESSION
     Dosage: SEE IMAGE
     Route: 048
     Dates: start: 20010101
  4. SYNTHROID [Concomitant]
  5. UNSPECIFIED HORMONE REPLACEMENT THERAPY AGENT ( [Concomitant]

REACTIONS (11)
  - AFFECT LABILITY [None]
  - ANGER [None]
  - ANXIETY [None]
  - BEREAVEMENT REACTION [None]
  - CRYING [None]
  - DRUG DEPENDENCE [None]
  - DRUG WITHDRAWAL SYNDROME [None]
  - FLAT AFFECT [None]
  - IMPAIRED WORK ABILITY [None]
  - PARAESTHESIA [None]
  - TREATMENT NONCOMPLIANCE [None]
